FAERS Safety Report 7055383-3 (Version None)
Quarter: 2010Q4

REPORT INFORMATION
  Report Type: 
  Country: None (occurrence: None)
  Receive Date: 20101019
  Receipt Date: 20101019
  Transmission Date: 20110411
  Serious: No
  Sender: FDA-Public Use
  Company Number: None

PATIENT
  Sex: Female
  Weight: 97.977 kg

DRUGS (1)
  1. AVELOX [Suspect]
     Indication: BRONCHITIS
     Dosage: 1 TABLET, 400 MG. TABLET 1 X DAILY PO
     Route: 048
     Dates: start: 20101015, end: 20101017

REACTIONS (9)
  - ANXIETY [None]
  - DIZZINESS [None]
  - HALLUCINATIONS, MIXED [None]
  - INITIAL INSOMNIA [None]
  - MOVEMENT DISORDER [None]
  - NIGHTMARE [None]
  - PANIC REACTION [None]
  - PARANOIA [None]
  - TREMOR [None]
